FAERS Safety Report 5534437-4 (Version None)
Quarter: 2007Q4

REPORT INFORMATION
  Report Type: 
  Country: None (occurrence: None)
  Receive Date: 20071205
  Receipt Date: 20071129
  Transmission Date: 20080405
  Serious: Yes (Other)
  Sender: FDA-Public Use
  Company Number: A0696572A

PATIENT
  Sex: Female

DRUGS (2)
  1. LAMICTAL [Suspect]
     Indication: BIPOLAR DISORDER
     Dosage: 200MG PER DAY
     Route: 048
     Dates: start: 20070901, end: 20071001
  2. NO CONCURRENT MEDICATION [Concomitant]

REACTIONS (6)
  - CHAPPED LIPS [None]
  - CONVULSION [None]
  - FATIGUE [None]
  - LYMPH NODE PAIN [None]
  - RASH [None]
  - RASH ERYTHEMATOUS [None]
